FAERS Safety Report 7605890-7 (Version None)
Quarter: 2011Q3

REPORT INFORMATION
  Report Type: 
  Country: None (occurrence: None)
  Receive Date: 20110713
  Receipt Date: 20110708
  Transmission Date: 20111222
  Serious: Yes (Life-Threatening, Hospitalization)
  Sender: FDA-Public Use
  Company Number: CH-ELI_LILLY_AND_COMPANY-CH201105008824

PATIENT
  Sex: Female
  Weight: 66 kg

DRUGS (6)
  1. ASPIRIN [Concomitant]
  2. RAMIPRIL [Concomitant]
  3. EFFIENT [Suspect]
     Indication: ACUTE CORONARY SYNDROME
     Dosage: 60 MG, LOADING DOSE
     Route: 048
     Dates: start: 20110313
  4. ATORVASTATIN [Concomitant]
  5. EPTIFIBATIDE [Concomitant]
  6. EFFIENT [Suspect]
     Dosage: 10 MG, QD
     Route: 048

REACTIONS (1)
  - THROMBOSIS IN DEVICE [None]
